FAERS Safety Report 9977390 (Version 2)
Quarter: 2014Q1

REPORT INFORMATION
  Report Type: Report from Study
  Country: US (occurrence: US)
  Receive Date: 20140306
  Receipt Date: 20140306
  Transmission Date: 20141002
  Serious: No
  Sender: FDA-Public Use
  Company Number: US-ABBVIE-13P-163-1135595-00

PATIENT
  Age: 48 Year
  Sex: Female

DRUGS (12)
  1. HUMIRA [Suspect]
     Indication: RHEUMATOID ARTHRITIS
     Dosage: INITIAL DOSE
     Dates: start: 20130808
  2. B COMPLEX WITH B-12 [Concomitant]
     Indication: ASTHENIA
  3. NEXIUM [Concomitant]
     Indication: PRODUCT USED FOR UNKNOWN INDICATION
  4. NIACIN [Concomitant]
     Indication: BLOOD CHOLESTEROL INCREASED
  5. BIOTIN [Concomitant]
  6. IRON [Concomitant]
     Indication: PRODUCT USED FOR UNKNOWN INDICATION
  7. PLAQUENIL [Concomitant]
     Indication: PRODUCT USED FOR UNKNOWN INDICATION
     Dosage: 2 TABS AT BEDTIME
  8. NORVASC [Concomitant]
     Indication: PRODUCT USED FOR UNKNOWN INDICATION
  9. D3 [Concomitant]
     Indication: PRODUCT USED FOR UNKNOWN INDICATION
     Dosage: 2 TABS QD
  10. LAVAZA [Concomitant]
     Indication: PRODUCT USED FOR UNKNOWN INDICATION
  11. LIDODERM [Concomitant]
     Indication: PAIN
     Route: 062
  12. TRAMADOL [Concomitant]
     Indication: PAIN
     Dosage: 1-2 ONCE A DAY

REACTIONS (4)
  - Pruritus [Not Recovered/Not Resolved]
  - Injection site pain [Recovered/Resolved]
  - Injection site pain [Recovered/Resolved]
  - Hypertension [Not Recovered/Not Resolved]
